FAERS Safety Report 11573069 (Version 1)
Quarter: 2015Q3

REPORT INFORMATION
  Report Type: Spontaneous
  Country: US (occurrence: US)
  Receive Date: 20150916
  Receipt Date: 20150916
  Transmission Date: 20151125
  Serious: No
  Sender: FDA-Public Use
  Company Number: US-ELI_LILLY_AND_COMPANY-US200910006768

PATIENT
  Age: 59 Year
  Sex: Female

DRUGS (4)
  1. COUMADIN [Concomitant]
     Active Substance: WARFARIN SODIUM
     Dosage: UNK, UNKNOWN
     Dates: end: 2009
  2. METHOTREXATE [Concomitant]
     Active Substance: METHOTREXATE
     Dosage: UNK, UNKNOWN
     Dates: end: 2009
  3. FORTEO [Suspect]
     Active Substance: TERIPARATIDE
     Dosage: UNK, UNKNOWN
     Dates: start: 20091012, end: 2009
  4. HUMIRA [Concomitant]
     Active Substance: ADALIMUMAB
     Dosage: UNK, UNKNOWN
     Dates: end: 2009

REACTIONS (4)
  - Pruritus [Recovered/Resolved]
  - Influenza [Unknown]
  - Blood test abnormal [Unknown]
  - Diarrhoea [Recovered/Resolved]

NARRATIVE: CASE EVENT DATE: 2009
